FAERS Safety Report 8525049-9 (Version None)
Quarter: 2012Q3

REPORT INFORMATION
  Report Type: 
  Country: None (occurrence: None)
  Receive Date: 20120720
  Receipt Date: 20120718
  Transmission Date: 20120928
  Serious: Yes (Death, Other)
  Sender: FDA-Public Use
  Company Number: US-BRISTOL-MYERS SQUIBB COMPANY-15882913

PATIENT
  Age: 70 Year
  Sex: Male
  Weight: 76 kg

DRUGS (2)
  1. YERVOY [Suspect]
     Indication: MALIGNANT MELANOMA
     Dosage: EARLIER 21APR2010 AND 05MAY2010(STUDY),22JUN2011. EXP:AUG/NOV2013;LOT NO:917039.200MG/40ML
     Route: 042
     Dates: start: 20110501
  2. BENADRYL [Concomitant]
     Indication: PREMEDICATION
     Route: 042
     Dates: start: 20110622

REACTIONS (3)
  - MUSCULOSKELETAL PAIN [None]
  - DEATH [None]
  - NEUROPATHY PERIPHERAL [None]
